FAERS Safety Report 6429341-3 (Version None)
Quarter: 2009Q4

REPORT INFORMATION
  Report Type: 
  Country: None (occurrence: None)
  Receive Date: 20091102
  Receipt Date: 20091023
  Transmission Date: 20100525
  Serious: Yes (Other)
  Sender: FDA-Public Use
  Company Number: 8053681

PATIENT
  Sex: Female
  Weight: 60.8 kg

DRUGS (2)
  1. CIMZIA [Suspect]
     Indication: RHEUMATOID ARTHRITIS
     Dosage: 400 MG SC
     Route: 058
     Dates: start: 20090101
  2. METHOTREXATE [Concomitant]

REACTIONS (7)
  - ARTHRALGIA [None]
  - DEAFNESS [None]
  - EAR PAIN [None]
  - ISCHAEMIA [None]
  - JOINT SWELLING [None]
  - OEDEMA PERIPHERAL [None]
  - PAIN IN EXTREMITY [None]
